FAERS Safety Report 5888783-5 (Version None)
Quarter: 2008Q3

REPORT INFORMATION
  Report Type: 
  Country: None (occurrence: None)
  Receive Date: 20080919
  Receipt Date: 20080908
  Transmission Date: 20090109
  Serious: Yes (Other)
  Sender: FDA-Public Use
  Company Number: JP-JNJFOC-20080902237

PATIENT

DRUGS (3)
  1. DUROTEP [Suspect]
     Route: 062
  2. DUROTEP [Suspect]
     Indication: DRUG USE FOR UNKNOWN INDICATION
     Dosage: HALF A 25MCG/HR PATCH
     Route: 062
  3. OXYCODONE HCL [Concomitant]
     Route: 048

REACTIONS (4)
  - DELIRIUM [None]
  - DIZZINESS [None]
  - SOMNOLENCE [None]
  - WRONG TECHNIQUE IN DRUG USAGE PROCESS [None]
